FAERS Safety Report 15964066 (Version 1)
Quarter: 2019Q1

REPORT INFORMATION
  Report Type: Spontaneous
  Country: RO (occurrence: RO)
  Receive Date: 20190214
  Receipt Date: 20190214
  Transmission Date: 20190417
  Serious: Yes (Hospitalization, Other)
  Sender: FDA-Public Use
  Company Number: RO-ASTRAZENECA-2019SE24192

PATIENT
  Age: 80 Year
  Sex: Male

DRUGS (5)
  1. BRILIQUE [Suspect]
     Active Substance: TICAGRELOR
     Indication: ACUTE MYOCARDIAL INFARCTION
     Route: 048
  2. ASPENTER [Concomitant]
     Active Substance: ASPIRIN
  3. TRITACE [Concomitant]
     Active Substance: RAMIPRIL
  4. SORTIS [Concomitant]
     Active Substance: ATORVASTATIN
  5. CONCOR [Concomitant]
     Active Substance: BISOPROLOL FUMARATE

REACTIONS (4)
  - Upper gastrointestinal haemorrhage [Unknown]
  - Duodenal ulcer [Unknown]
  - Haematemesis [Unknown]
  - Melaena [Unknown]
